FAERS Safety Report 24294346 (Version 1)
Quarter: 2024Q3

REPORT INFORMATION
  Report Type: Spontaneous
  Country: US (occurrence: US)
  Receive Date: 20240906
  Receipt Date: 20240906
  Transmission Date: 20241016
  Serious: Yes (Other)
  Sender: JOHNSON AND JOHNSON
  Company Number: US-JNJFOC-20240901485

PATIENT
  Sex: Female

DRUGS (3)
  1. TYLENOL [Suspect]
     Active Substance: ACETAMINOPHEN
     Indication: Migraine
     Dosage: 1000-2000 MG PO PRN
     Route: 048
  2. IMITREX [Suspect]
     Active Substance: SUMATRIPTAN SUCCINATE
     Indication: Migraine
     Dosage: PRN
     Route: 048
     Dates: start: 2013
  3. IRON [Concomitant]
     Active Substance: IRON
     Indication: Anaemia
     Route: 042
     Dates: start: 20240308, end: 2024

REACTIONS (2)
  - Exposure during pregnancy [Unknown]
  - Incorrect dose administered [Unknown]
